FAERS Safety Report 5547665-9 (Version None)
Quarter: 2007Q4

REPORT INFORMATION
  Report Type: 
  Country: None (occurrence: None)
  Receive Date: 20071211
  Receipt Date: 20071206
  Transmission Date: 20080405
  Serious: Yes (Hospitalization)
  Sender: FDA-Public Use
  Company Number: SI-BOEHRINGER INGELHEIM PHARMACEUTICALS, INC.-2007-DE-07236GD

PATIENT
  Age: 60 Year
  Sex: Male
  Weight: 74 kg

DRUGS (5)
  1. TELMISARTAN [Suspect]
     Indication: HYPERTENSION
  2. GLYCERYL TRINITRATE [Suspect]
     Indication: HYPERTENSION
  3. BACLOFEN [Suspect]
     Indication: MUSCLE SPASTICITY
  4. INSULIN [Concomitant]
     Indication: DIABETES MELLITUS
  5. AMOXICILLIN + CLAVULANATE POTASSIUM [Concomitant]
     Indication: PNEUMONIA

REACTIONS (7)
  - ANURIA [None]
  - COMA [None]
  - CONDITION AGGRAVATED [None]
  - DRUG TOXICITY [None]
  - HYPOTENSION [None]
  - RENAL FAILURE ACUTE [None]
  - RESPIRATORY FAILURE [None]
